FAERS Safety Report 13488903 (Version 1)
Quarter: 2017Q2

REPORT INFORMATION
  Report Type: Spontaneous
  Country: US (occurrence: US)
  Receive Date: 20170426
  Receipt Date: 20170426
  Transmission Date: 20170830
  Serious: Yes (Death)
  Sender: FDA-Public Use
  Company Number: US-LEADIANT BIOSCIENCES INC-2017STPI000311

PATIENT
  Age: 60 Year
  Sex: Female

DRUGS (17)
  1. LOPERAMIDE [Concomitant]
     Active Substance: LOPERAMIDE
  2. ALBUTEROL                          /00139501/ [Concomitant]
     Active Substance: ALBUTEROL
  3. MATULANE [Suspect]
     Active Substance: PROCARBAZINE HYDROCHLORIDE
     Indication: NON-HODGKIN^S LYMPHOMA
     Dosage: 200 MG, QD
     Route: 048
     Dates: start: 20170321
  4. ONDANSETRON [Concomitant]
     Active Substance: ONDANSETRON
  5. TYLENOL [Concomitant]
     Active Substance: ACETAMINOPHEN
  6. BISACODYL. [Concomitant]
     Active Substance: BISACODYL
  7. HYDROCODONE [Concomitant]
     Active Substance: HYDROCODONE
  8. SENNA                              /00142201/ [Concomitant]
     Active Substance: SENNA LEAF
  9. POTASSIUM CHLORIDE. [Concomitant]
     Active Substance: POTASSIUM CHLORIDE
  10. LASIX [Concomitant]
     Active Substance: FUROSEMIDE
  11. MAGNESIUM [Concomitant]
     Active Substance: MAGNESIUM
  12. PANTOPRAZOLE [Concomitant]
     Active Substance: PANTOPRAZOLE
  13. MULTIVITAMIN                       /00097801/ [Concomitant]
     Active Substance: VITAMINS
  14. PREDNISONE. [Concomitant]
     Active Substance: PREDNISONE
  15. VANCOMYCIN [Concomitant]
     Active Substance: VANCOMYCIN
  16. XOPENEX [Concomitant]
     Active Substance: LEVALBUTEROL HYDROCHLORIDE
  17. ZOSYN [Concomitant]
     Active Substance: PIPERACILLIN SODIUM\TAZOBACTAM SODIUM

REACTIONS (1)
  - Death [Fatal]

NARRATIVE: CASE EVENT DATE: 20170328
